FAERS Safety Report 11682514 (Version 3)
Quarter: 2015Q4

REPORT INFORMATION
  Report Type: Report from Study
  Country: US (occurrence: US)
  Receive Date: 20151029
  Receipt Date: 20151112
  Transmission Date: 20160304
  Serious: Yes (Other)
  Sender: FDA-Public Use
  Company Number: US-GILEAD-2015-0177358

PATIENT
  Age: 65 Year
  Sex: Female

DRUGS (4)
  1. AMBRISENTAN [Suspect]
     Active Substance: AMBRISENTAN
     Indication: PULMONARY ARTERIAL HYPERTENSION
     Dosage: 10 MG, QD
     Route: 065
     Dates: start: 20110418
  2. REVATIO [Concomitant]
     Active Substance: SILDENAFIL CITRATE
  3. SILDENAFIL. [Concomitant]
     Active Substance: SILDENAFIL
  4. REMODULIN [Concomitant]
     Active Substance: TREPROSTINIL

REACTIONS (9)
  - Oedema peripheral [Unknown]
  - Nausea [Unknown]
  - Asthenia [Unknown]
  - Ascites [Unknown]
  - Fatigue [Unknown]
  - Breath sounds abnormal [Unknown]
  - Constipation [Unknown]
  - Fluid retention [Unknown]
  - Oedema [Unknown]

NARRATIVE: CASE EVENT DATE: 20110418
